FAERS Safety Report 5563563-9 (Version None)
Quarter: 2007Q4

REPORT INFORMATION
  Report Type: 
  Country: None (occurrence: None)
  Receive Date: 20071217
  Receipt Date: 20071204
  Transmission Date: 20080405
  Serious: No
  Sender: FDA-Public Use
  Company Number: US-ASTRAZENECA-2007UW16792

PATIENT
  Age: 76 Year
  Sex: Female
  Weight: 49.9 kg

DRUGS (5)
  1. CRESTOR [Suspect]
     Indication: BLOOD CHOLESTEROL INCREASED
     Route: 048
     Dates: start: 20070101
  2. SINEMET [Concomitant]
  3. FOSAMAX [Concomitant]
  4. ALTACE [Concomitant]
  5. ASPIRIN [Concomitant]

REACTIONS (3)
  - BACK PAIN [None]
  - CONSTIPATION [None]
  - SOMNOLENCE [None]
